FAERS Safety Report 13835381 (Version 1)
Quarter: 2017Q3

REPORT INFORMATION
  Report Type: Spontaneous
  Country: US (occurrence: US)
  Receive Date: 20170804
  Receipt Date: 20170804
  Transmission Date: 20171127
  Serious: Yes (Other)
  Sender: FDA-Public Use
  Company Number: None

PATIENT
  Age: 74 Month
  Sex: Male
  Weight: 78.75 kg

DRUGS (2)
  1. SIMVASTATIN. [Suspect]
     Active Substance: SIMVASTATIN
  2. EZETIMIBE. [Suspect]
     Active Substance: EZETIMIBE
     Indication: BLOOD CHOLESTEROL
     Dosage: ?          QUANTITY:1 TABLET(S);?
     Route: 048
     Dates: start: 20170501, end: 20170804

REACTIONS (3)
  - Product substitution issue [None]
  - Muscular weakness [None]
  - Product physical issue [None]

NARRATIVE: CASE EVENT DATE: 20170801
